FAERS Safety Report 7478670-3 (Version None)
Quarter: 2011Q2

REPORT INFORMATION
  Report Type: 
  Country: None (occurrence: None)
  Receive Date: 20110511
  Receipt Date: 20110511
  Transmission Date: 20111010
  Serious: No
  Sender: FDA-Public Use
  Company Number: None

PATIENT
  Age: 83 Year
  Sex: Female
  Weight: 58.9676 kg

DRUGS (1)
  1. POTASSIUM CHLORIDE [Suspect]
     Indication: SUPPLEMENTATION THERAPY
     Dosage: 20 MEQ 2 A DAY
     Dates: start: 20110112

REACTIONS (3)
  - ABDOMINAL DISCOMFORT [None]
  - FAECES DISCOLOURED [None]
  - DIARRHOEA [None]
